FAERS Safety Report 16188240 (Version 6)
Quarter: 2019Q2

REPORT INFORMATION
  Report Type: Spontaneous
  Country: CA (occurrence: CA)
  Receive Date: 20190412
  Receipt Date: 20190527
  Transmission Date: 20190711
  Serious: Yes (Other)
  Sender: FDA-Public Use
  Company Number: CA-CELLTRION INC.-2019CA020345

PATIENT

DRUGS (4)
  1. ETODOLAC. [Concomitant]
     Active Substance: ETODOLAC
     Dosage: 300 MG, 2X/DAY
     Dates: start: 20180108
  2. INFLECTRA [Suspect]
     Active Substance: INFLIXIMAB-DYYB
     Dosage: 500 MG, EVERY 0, 2, 6 THEN EVERY 8 WEEKS
     Route: 042
     Dates: start: 20190321, end: 20190404
  3. COSENTYX [Concomitant]
     Active Substance: SECUKINUMAB
     Dosage: 3000 MG, EVERY 2 WEEKS
     Route: 058
     Dates: start: 201611
  4. INFLECTRA [Suspect]
     Active Substance: INFLIXIMAB-DYYB
     Indication: ANKYLOSING SPONDYLITIS
     Dosage: 500 MG, EVERY 0, 2, 6 THEN EVERY 8 WEEKS
     Route: 042
     Dates: start: 20190307

REACTIONS (17)
  - Neurogenic shock [Unknown]
  - Dyspnoea [Unknown]
  - Loss of consciousness [Unknown]
  - Gait disturbance [Unknown]
  - Dizziness [Unknown]
  - Migraine [Unknown]
  - Rash [Not Recovered/Not Resolved]
  - Dyspepsia [Not Recovered/Not Resolved]
  - Abdominal pain [Not Recovered/Not Resolved]
  - Syncope [Unknown]
  - Presyncope [Unknown]
  - Inflammation [Not Recovered/Not Resolved]
  - Anxiety [Unknown]
  - Insomnia [Unknown]
  - Hot flush [Not Recovered/Not Resolved]
  - Photophobia [Unknown]
  - Abdominal pain upper [Not Recovered/Not Resolved]

NARRATIVE: CASE EVENT DATE: 20190307
